FAERS Safety Report 18474336 (Version 1)
Quarter: 2020Q4

REPORT INFORMATION
  Report Type: Spontaneous
  Country: GB (occurrence: GB)
  Receive Date: 20201106
  Receipt Date: 20201106
  Transmission Date: 20210114
  Serious: Yes (Other)
  Sender: FDA-Public Use
  Company Number: GB-TEVA-2020-GB-1844902

PATIENT
  Age: 79 Year
  Sex: Female

DRUGS (11)
  1. SENNAE FOLIUM [Concomitant]
  2. AMLODIPINE [Concomitant]
     Active Substance: AMLODIPINE BESYLATE
  3. SIMVASTATIN. [Concomitant]
     Active Substance: SIMVASTATIN
  4. LISINOPRIL. [Concomitant]
     Active Substance: LISINOPRIL
  5. SOLIFENACIN [Concomitant]
     Active Substance: SOLIFENACIN
  6. APIXABAN [Concomitant]
     Active Substance: APIXABAN
  7. FUROSEMIDE SODIUM [Concomitant]
     Active Substance: FUROSEMIDE SODIUM
  8. PREDNISOLONE. [Concomitant]
     Active Substance: PREDNISOLONE
  9. LINEZOLID. [Suspect]
     Active Substance: LINEZOLID
     Indication: CELLULITIS
     Dosage: 600MG
     Route: 048
     Dates: start: 20200924, end: 20200929
  10. OMEPRAZOLE. [Concomitant]
     Active Substance: OMEPRAZOLE
  11. COTRIMOXAZOLE [Concomitant]
     Active Substance: SULFAMETHOXAZOLE\TRIMETHOPRIM

REACTIONS (1)
  - Hallucination, visual [Recovered/Resolved]

NARRATIVE: CASE EVENT DATE: 20200925
